FAERS Safety Report 5193006-9 (Version None)
Quarter: 2006Q4

REPORT INFORMATION
  Report Type: 
  Country: None (occurrence: None)
  Receive Date: 20061228
  Receipt Date: 20060214
  Transmission Date: 20070319
  Serious: No
  Sender: FDA-Public Use
  Company Number: US-GLAXOSMITHKLINE-A0593674A

PATIENT
  Age: 75 Year
  Sex: Male

DRUGS (3)
  1. AVODART [Suspect]
     Indication: BENIGN PROSTATIC HYPERPLASIA
     Dosage: .5MG PER DAY
     Route: 048
     Dates: start: 20060201
  2. COUMADIN [Concomitant]
  3. FLOMAX [Concomitant]

REACTIONS (8)
  - ASTHENIA [None]
  - BACK PAIN [None]
  - CHEST PAIN [None]
  - DRY MOUTH [None]
  - FATIGUE [None]
  - FLANK PAIN [None]
  - GASTROOESOPHAGEAL REFLUX DISEASE [None]
  - PYREXIA [None]
